FAERS Safety Report 8748622 (Version 3)
Quarter: 2012Q4

REPORT INFORMATION
  Report Type: Report from Study
  Country: JP (occurrence: JP)
  Receive Date: 20120827
  Receipt Date: 20121221
  Transmission Date: 20130627
  Serious: Yes (Hospitalization, Other)
  Sender: FDA-Public Use
  Company Number: JP-VERTEX PHARMACEUTICAL INC.-2012-019867

PATIENT
  Age: 62 Year
  Sex: Female

DRUGS (14)
  1. VX-950 (TELAPREVIR) [Suspect]
     Indication: CHRONIC HEPATITIS C
     Dosage: 1500 mg, qd
     Route: 048
     Dates: start: 20120218, end: 20120512
  2. RIBAVIRIN [Suspect]
     Indication: CHRONIC HEPATITIS C
     Dosage: 600 mg, qd
     Route: 048
     Dates: start: 20120218, end: 20120316
  3. RIBAVIRIN [Suspect]
     Dosage: 400 mg, qd
     Route: 048
     Dates: start: 20120317, end: 20120427
  4. RIBAVIRIN [Suspect]
     Dosage: 200 mg, qd
     Route: 048
     Dates: start: 20120428, end: 20120525
  5. RIBAVIRIN [Suspect]
     Dosage: 400 mg, qd
     Route: 048
     Dates: start: 20120526, end: 20120608
  6. RIBAVIRIN [Suspect]
     Dosage: 600 mg, qd
     Route: 048
     Dates: start: 20120609, end: 20120730
  7. PEGINTRON                          /01543001/ [Suspect]
     Indication: CHRONIC HEPATITIS C
     Dosage: 1.5 ?g/kg, qw
     Route: 058
     Dates: start: 20120218, end: 20120728
  8. SEDEKOPAN [Concomitant]
     Dosage: 1 mg, qd
     Route: 048
     Dates: start: 20120310, end: 20120804
  9. PARIET [Concomitant]
     Dosage: 10 mg, qd
     Route: 048
  10. PROMAC                             /01312301/ [Concomitant]
     Dosage: 1 g, qd
     Route: 048
  11. CLARITIN REDITABS [Concomitant]
     Dosage: 10 mg, qd
     Route: 048
     Dates: start: 20120526, end: 20120804
  12. ALLOPURINOL [Concomitant]
     Dosage: 200 mg, qd
     Route: 048
  13. CELESTAMINE                        /00252801/ [Concomitant]
     Dosage: 3 DF, qd
     Route: 048
     Dates: start: 20120407, end: 20120512
  14. CELESTAMINE                        /00252801/ [Concomitant]
     Dosage: 6 DF, QD
     Route: 048
     Dates: end: 20120525

REACTIONS (6)
  - Pneumonia [Recovered/Resolved]
  - White blood cell count decreased [Recovered/Resolved]
  - Hyperuricaemia [None]
  - Rash [None]
  - Platelet count decreased [None]
  - Anaemia [None]
